FAERS Safety Report 7180513-2 (Version None)
Quarter: 2010Q4

REPORT INFORMATION
  Report Type: 
  Country: None (occurrence: None)
  Receive Date: 20101221
  Receipt Date: 20101213
  Transmission Date: 20110411
  Serious: Yes (Life-Threatening, Hospitalization, Other)
  Sender: FDA-Public Use
  Company Number: JP-PFIZER INC-2010145163

PATIENT
  Age: 85 Year
  Sex: Female
  Weight: 61.5 kg

DRUGS (24)
  1. LYRICA [Suspect]
     Dosage: 75 MG, 2X/DAY
     Route: 048
     Dates: start: 20101112, end: 20101114
  2. THYRADIN S [Concomitant]
     Dosage: 50 MG, 1X/DAY
     Route: 048
     Dates: end: 20101115
  3. THYRADIN S [Concomitant]
     Dosage: UNK
     Route: 048
     Dates: start: 20101201
  4. GASTER D [Concomitant]
     Dosage: 20 MG, 2X/DAY
     Route: 048
     Dates: end: 20101115
  5. GASTER D [Concomitant]
     Dosage: UNK
     Route: 048
     Dates: start: 20101201
  6. DEPAS [Concomitant]
     Dosage: 0.5 MG, 2X/DAY
     Route: 048
     Dates: end: 20101115
  7. DEPAS [Concomitant]
     Dosage: UNK
     Route: 048
     Dates: start: 20101201
  8. DIOVAN [Concomitant]
     Dosage: 40 MG, 1X/DAY
     Route: 048
     Dates: end: 20101115
  9. DIOVAN [Concomitant]
     Dosage: UNK
     Route: 048
     Dates: start: 20101201
  10. ADALAT CC [Concomitant]
     Dosage: 20 MG, 1X/DAY
     Route: 048
     Dates: end: 20101115
  11. ADALAT CC [Concomitant]
     Dosage: UNK
     Route: 048
     Dates: start: 20101201
  12. SEMUSTINE [Concomitant]
     Dosage: 24 MG, 1X/DAY
     Route: 048
     Dates: end: 20101115
  13. SEMUSTINE [Concomitant]
     Dosage: UNK
     Route: 048
     Dates: start: 20101201
  14. HYPEN [Concomitant]
     Dosage: 200 MG, 2X/DAY
     Route: 048
     Dates: end: 20101115
  15. CYTOTEC [Concomitant]
     Dosage: 100 MG, 2X/DAY
     Route: 048
     Dates: end: 20101115
  16. AMOBAN [Concomitant]
     Dosage: 7.5 MG, 1X/DAY
     Route: 048
     Dates: end: 20101115
  17. AMOBAN [Concomitant]
     Dosage: UNK
     Route: 048
     Dates: start: 20101201
  18. FERROUS CITRATE [Concomitant]
     Dosage: 50 MG, 1X/DAY
     Route: 048
     Dates: start: 20090727, end: 20101115
  19. FERROUS CITRATE [Concomitant]
     Dosage: UNK
     Route: 048
     Dates: start: 20101201
  20. IMIDAFENACIN [Concomitant]
     Dosage: 0.1 MG, 2X/DAY
     Route: 048
     Dates: start: 20090805, end: 20101115
  21. NITRODERM [Concomitant]
     Dosage: 25 MG, 1X/DAY
     Dates: start: 20101115, end: 20101116
  22. NITRODERM [Concomitant]
     Dosage: UNK
  23. GRAMALIL [Concomitant]
     Dosage: 25 MG, 1X/DAY
     Route: 048
     Dates: start: 20101117
  24. LASIX [Concomitant]
     Dosage: 40 MG, 1X/DAY
     Route: 048
     Dates: start: 20101124

REACTIONS (7)
  - CARDIAC FAILURE [None]
  - DECREASED APPETITE [None]
  - GAIT DISTURBANCE [None]
  - GENERALISED OEDEMA [None]
  - PLEURAL EFFUSION [None]
  - SOMNOLENCE [None]
  - WEIGHT INCREASED [None]
